FAERS Safety Report 12465773 (Version 1)
Quarter: 2016Q2

REPORT INFORMATION
  Report Type: Spontaneous
  Country: US (occurrence: US)
  Receive Date: 20160614
  Receipt Date: 20160614
  Transmission Date: 20160815
  Serious: No
  Sender: FDA-Public Use
  Company Number: US-BAXALTA-2016BLT004317

PATIENT
  Sex: Female

DRUGS (3)
  1. HYQVIA [Suspect]
     Active Substance: HUMAN IMMUNOGLOBULIN G\HYALURONIDASE RECOMBINANT HUMAN
     Dosage: 45 G, THIRD RAMP UP DOSE
     Route: 058
     Dates: start: 20160524, end: 20160524
  2. HYQVIA [Suspect]
     Active Substance: HUMAN IMMUNOGLOBULIN G\HYALURONIDASE RECOMBINANT HUMAN
     Indication: PRODUCT USED FOR UNKNOWN INDICATION
     Dosage: 15 G, FIRST RAMP UP DOSE
     Route: 058
     Dates: start: 20160503, end: 20160503
  3. HYQVIA [Suspect]
     Active Substance: HUMAN IMMUNOGLOBULIN G\HYALURONIDASE RECOMBINANT HUMAN
     Dosage: 30 G, SECOND RAMP UP DOSE
     Route: 058
     Dates: start: 20160510, end: 20160510

REACTIONS (2)
  - Vomiting [Recovered/Resolved]
  - Nausea [Recovered/Resolved]

NARRATIVE: CASE EVENT DATE: 20160503
